FAERS Safety Report 9453296 (Version 2)
Quarter: 2013Q4

REPORT INFORMATION
  Report Type: Report from Study
  Country: US (occurrence: US)
  Receive Date: 20130812
  Receipt Date: 20131009
  Transmission Date: 20140711
  Serious: Yes (Hospitalization)
  Sender: FDA-Public Use
  Company Number: US-SANOFI-AVENTIS-2013SA080083

PATIENT
  Age: 61 Year
  Sex: Female

DRUGS (2)
  1. AUBAGIO [Suspect]
     Indication: MULTIPLE SCLEROSIS
     Route: 048
     Dates: start: 20130322
  2. CARDIZEM [Suspect]
     Route: 065

REACTIONS (5)
  - Multiple sclerosis relapse [Not Recovered/Not Resolved]
  - Oedema peripheral [Unknown]
  - Fatigue [Unknown]
  - Hypotension [Not Recovered/Not Resolved]
  - Alopecia [Not Recovered/Not Resolved]
